FAERS Safety Report 18736255 (Version 1)
Quarter: 2021Q1

REPORT INFORMATION
  Report Type: Spontaneous
  Country: EE (occurrence: EE)
  Receive Date: 20210113
  Receipt Date: 20210113
  Transmission Date: 20210419
  Serious: Yes (Other)
  Sender: FDA-Public Use
  Company Number: EE-PFIZER INC-2021016217

PATIENT
  Age: 27 Year
  Sex: Female
  Weight: 63 kg

DRUGS (1)
  1. NEURONTIN [Suspect]
     Active Substance: GABAPENTIN
     Indication: PAIN
     Dosage: 300 MG, 2X/DAY, FREQ:12 H
     Route: 048

REACTIONS (6)
  - Headache [Unknown]
  - Lethargy [Unknown]
  - Muscular weakness [Unknown]
  - Somnolence [Unknown]
  - Presyncope [Unknown]
  - Abdominal pain [Unknown]
